FAERS Safety Report 5096138-9 (Version None)
Quarter: 2006Q3

REPORT INFORMATION
  Report Type: 
  Country: None (occurrence: None)
  Receive Date: 20060905
  Receipt Date: 20060102
  Transmission Date: 20061208
  Serious: Yes (Disabling)
  Sender: FDA-Public Use
  Company Number: BE-ROCHE-430275

PATIENT
  Age: 58 Year
  Sex: Male
  Weight: 57 kg

DRUGS (4)
  1. PEG-INTERFERON ALFA 2A (RO 25-8310) [Suspect]
     Dosage: FORMULATION REPORTED AS SYRINGE.
     Route: 058
     Dates: start: 20040723
  2. RIBAVIRIN [Suspect]
     Route: 048
     Dates: start: 20040723
  3. AMANTADINE HCL [Suspect]
     Route: 048
     Dates: start: 20040722
  4. L-THYROXINE [Concomitant]
     Dates: start: 20050615

REACTIONS (1)
  - VITREOUS DETACHMENT [None]
